FAERS Safety Report 14324266 (Version 1)
Quarter: 2017Q4

REPORT INFORMATION
  Report Type: Spontaneous
  Country: US (occurrence: US)
  Receive Date: 20171226
  Receipt Date: 20171226
  Transmission Date: 20180321
  Serious: Yes (Other)
  Sender: FDA-Public Use
  Company Number: US-GUERBET-US-20170262

PATIENT
  Sex: Female

DRUGS (18)
  1. NITROGLYCERIN 0.2 MG/HR TRANSDERM 24 HR PATCH [Concomitant]
     Indication: PRODUCT USED FOR UNKNOWN INDICATION
     Dosage: APPLY 1 PATCH BY TRANSDERMAL ROUTE EVERY DAY REMOVE AT NIGHT FOR 10-12 HOURS
     Route: 062
  2. FLUTICASONE PROP 50 MCG SPRAY [Concomitant]
     Indication: PRODUCT USED FOR UNKNOWN INDICATION
     Dosage: SPRAY 1 SPRAY BY INTRANASAL ROUTE EVERY DAY IN EACH NOSTRIL
     Route: 065
  3. PREDNISONE 5 MG TABLET [Concomitant]
     Indication: PRODUCT USED FOR UNKNOWN INDICATION
     Route: 048
  4. FERROUS SULFATE 325 MG TABLET [Concomitant]
     Indication: PRODUCT USED FOR UNKNOWN INDICATION
     Route: 048
  5. CYMBALTA 60 MG CAPSULE, DELAYED RELEASE [Concomitant]
     Indication: PRODUCT USED FOR UNKNOWN INDICATION
     Dosage: TAKE 1 TABLET BY MOUTH TWICE DAILY
     Route: 065
  6. LEVOXYL 75 MCG TABLET [Concomitant]
     Indication: PRODUCT USED FOR UNKNOWN INDICATION
     Dosage: TAKE 1 TABLET BY ORAL ROUTE EVERY DAY
     Route: 048
  7. PROAIR HFA 90 MCG/ACTUATION AEROSOL INHALER [Concomitant]
     Indication: PRODUCT USED FOR UNKNOWN INDICATION
     Dosage: INHALE 1 PUFF BY INHALATION ROUTE EVERY 4-6 HOURS AS NEEDED
     Route: 065
  8. CALCIUM 500 + D 500 MG (1250 MG) - 400 UNIT TABLET [Concomitant]
     Indication: PRODUCT USED FOR UNKNOWN INDICATION
     Dosage: TAKE ONE TABLET BY MOUTH TWICE DAILY
     Route: 065
  9. LYRICA 200 MG [Concomitant]
     Indication: PRODUCT USED FOR UNKNOWN INDICATION
     Route: 048
  10. OPTIRAY [Suspect]
     Active Substance: IOVERSOL
     Indication: PRODUCT USED FOR UNKNOWN INDICATION
     Route: 065
  11. SINGULAIR 10 MG TABLET [Concomitant]
     Indication: PRODUCT USED FOR UNKNOWN INDICATION
     Dosage: TAKE ONE TABLET AT BEDTIME
     Route: 065
  12. ATROVENT HFA [Concomitant]
     Active Substance: IPRATROPIUM BROMIDE
     Indication: PRODUCT USED FOR UNKNOWN INDICATION
     Dosage: INHALE 2 PUFF 4 TIMES EVERY DAY
     Route: 065
  13. CLONIDINE HCL 0.1 MG TABLET [Concomitant]
     Active Substance: CLONIDINE HYDROCHLORIDE
     Indication: PRODUCT USED FOR UNKNOWN INDICATION
     Dosage: TAKE 1 TABLET  BY ORAL ROUTE 2 TIMES EVERY DAY
     Route: 048
  14. VERAPAMIL ER (SR) 240 MG TABLET, EXTENDED RELEASE [Concomitant]
     Indication: PRODUCT USED FOR UNKNOWN INDICATION
     Dosage: TAKE 1 TABLET BY MOUTH DAILY
     Route: 065
  15. PLAQUENIL [Concomitant]
     Active Substance: HYDROXYCHLOROQUINE SULFATE
     Indication: PRODUCT USED FOR UNKNOWN INDICATION
     Dosage: TAKE 1 TABLET BY MOUTH TWICE DAILY
     Route: 065
  16. TRULICITY 0.75 MG/0.5 ML SUBCUTANEOUS PEN INJECTOR [Concomitant]
     Indication: PRODUCT USED FOR UNKNOWN INDICATION
     Dosage: 0.75 MG/0.5 ML INJECT 0.5 MILLILITER BY SUBCUTANEOUS ROUTE EVERY WEEK IN THE ABDOMEN, THIGH, OR UPPE
     Route: 058
  17. MAXZIDE 75 MG-50 MG TABLET [Concomitant]
     Indication: PRODUCT USED FOR UNKNOWN INDICATION
     Dosage: 75MG-50MG TABLET - TAKE ONE TABLET BY MOUTH DAILY
     Route: 065
  18. NORCO 10 MG-325 MG TABLET [Concomitant]
     Indication: PRODUCT USED FOR UNKNOWN INDICATION
     Dosage: 10MG-325MG TAKE 1 TABLET BY ORAL ROUTE EVERY 12 HOURS
     Route: 048

REACTIONS (1)
  - Anaphylactic reaction [Unknown]
